FAERS Safety Report 7470716-1 (Version None)
Quarter: 2011Q2

REPORT INFORMATION
  Report Type: 
  Country: None (occurrence: None)
  Receive Date: 20110510
  Receipt Date: 20110427
  Transmission Date: 20111010
  Serious: Yes (Disabling)
  Sender: FDA-Public Use
  Company Number: PHHY2011IT35423

PATIENT
  Sex: Female

DRUGS (1)
  1. ZOMETA [Suspect]
     Indication: MULTIPLE MYELOMA
     Dosage: 4 MG, CYCLIC DOSE
     Route: 042
     Dates: start: 20100401, end: 20101201

REACTIONS (2)
  - EXPOSED BONE IN JAW [None]
  - OSTEOMYELITIS [None]
